FAERS Safety Report 9813702 (Version 1)
Quarter: 2014Q1

REPORT INFORMATION
  Report Type: Spontaneous
  Country: US (occurrence: None)
  Receive Date: 20140109
  Receipt Date: 20140109
  Transmission Date: 20141002
  Serious: Yes (Hospitalization)
  Sender: FDA-Public Use
  Company Number: None

PATIENT
  Age: 91 Year
  Sex: Female
  Weight: 75.7 kg

DRUGS (2)
  1. DABIGATRAN 75MG [Suspect]
     Indication: THROMBOSIS PROPHYLAXIS
     Dosage: 1 CAPSULE
     Route: 048
  2. DABIGATRAN 75MG [Suspect]
     Indication: THROMBOSIS PROPHYLAXIS
     Dosage: 1 CAPSULE
     Route: 048

REACTIONS (3)
  - Asthenia [None]
  - Anaemia [None]
  - Chronic gastrointestinal bleeding [None]
